FAERS Safety Report 19577639 (Version 2)
Quarter: 2021Q3

REPORT INFORMATION
  Report Type: Spontaneous
  Country: TR (occurrence: TR)
  Receive Date: 20210719
  Receipt Date: 20210821
  Transmission Date: 20211014
  Serious: Yes (Life-Threatening, Hospitalization, Other)
  Sender: FDA-Public Use
  Company Number: TR-AMGEN-TURSP2021109675

PATIENT
  Age: 9 Year
  Sex: Male

DRUGS (5)
  1. BLINCYTO [Suspect]
     Active Substance: BLINATUMOMAB
     Dosage: UNK
     Route: 065
     Dates: start: 20210212, end: 20210311
  2. BLINCYTO [Suspect]
     Active Substance: BLINATUMOMAB
     Indication: B PRECURSOR TYPE ACUTE LEUKAEMIA
     Dosage: UNK
     Route: 065
     Dates: start: 2020, end: 2020
  3. CLOFARABINE. [Concomitant]
     Active Substance: CLOFARABINE
     Dosage: UNK
  4. CYTARABINE. [Concomitant]
     Active Substance: CYTARABINE
     Dosage: UNK
  5. BLINCYTO [Suspect]
     Active Substance: BLINATUMOMAB
     Dosage: UNK
     Route: 065
     Dates: start: 20210329, end: 20210426

REACTIONS (9)
  - Vision blurred [Unknown]
  - Somnolence [Unknown]
  - White blood cell count abnormal [Unknown]
  - Blast cell count increased [Unknown]
  - Tremor [Recovering/Resolving]
  - Neurotoxicity [Unknown]
  - Muscular weakness [Unknown]
  - Depressed level of consciousness [Unknown]
  - Magnetic resonance imaging head abnormal [Unknown]

NARRATIVE: CASE EVENT DATE: 2020
